FAERS Safety Report 5071738-0 (Version None)
Quarter: 2006Q3

REPORT INFORMATION
  Report Type: 
  Country: None (occurrence: None)
  Receive Date: 20060801
  Receipt Date: 20060724
  Transmission Date: 20061208
  Serious: Yes (Death)
  Sender: FDA-Public Use
  Company Number: DE200607004214

PATIENT
  Sex: Male

DRUGS (1)
  1. HUMULIN R [Suspect]
     Dosage: SUBCUTANEOUS
     Route: 058
     Dates: start: 20060101, end: 20060101

REACTIONS (2)
  - COMPLETED SUICIDE [None]
  - INTENTIONAL OVERDOSE [None]
